FAERS Safety Report 10789618 (Version 1)
Quarter: 2015Q1

REPORT INFORMATION
  Report Type: Spontaneous
  Country: BR (occurrence: BR)
  Receive Date: 20150212
  Receipt Date: 20150212
  Transmission Date: 20150721
  Serious: Yes (Other)
  Sender: FDA-Public Use
  Company Number: BR-ELI_LILLY_AND_COMPANY-BR201402007870

PATIENT
  Age: 32 Year
  Sex: Female
  Weight: 71 kg

DRUGS (2)
  1. HUMULIN N [Suspect]
     Active Substance: INSULIN HUMAN
     Indication: GESTATIONAL DIABETES
     Dosage: UNK, UNKNOWN
     Route: 058
     Dates: start: 201402
  2. ISOXSUPRINE HYDROCHLORIDE. [Concomitant]
     Active Substance: ISOXSUPRINE HYDROCHLORIDE
     Indication: UTERINE CONTRACTIONS DURING PREGNANCY
     Dosage: UNK, UNKNOWN
     Route: 065

REACTIONS (2)
  - Placental disorder [Unknown]
  - Exposure during pregnancy [Unknown]

NARRATIVE: CASE EVENT DATE: 201402
